FAERS Safety Report 12198975 (Version 1)
Quarter: 2016Q1

REPORT INFORMATION
  Report Type: Spontaneous
  Country: None (occurrence: None)
  Receive Date: 20160321
  Receipt Date: 20160321
  Transmission Date: 20160526
  Serious: Yes (Hospitalization)
  Sender: FDA-Public Use
  Company Number: None

PATIENT
  Age: 46 Year
  Sex: Female

DRUGS (11)
  1. CITALOPRAM [Concomitant]
     Active Substance: CITALOPRAM HYDROBROMIDE
  2. ATORVASTATIN [Concomitant]
     Active Substance: ATORVASTATIN
  3. ARIXTRA [Suspect]
     Active Substance: FONDAPARINUX SODIUM
     Indication: AORTIC VALVE REPLACEMENT
     Dosage: 1 ONCE DAILY, GIVEN INTO/UNDER THE SKIN
  4. KEPPRA [Concomitant]
     Active Substance: LEVETIRACETAM
  5. LORAZEPAM. [Concomitant]
     Active Substance: LORAZEPAM
  6. IRON [Concomitant]
     Active Substance: IRON
  7. ALBUTEROL. [Concomitant]
     Active Substance: ALBUTEROL
  8. TYLENOL [Concomitant]
     Active Substance: ACETAMINOPHEN
  9. METOPROLOL. [Concomitant]
     Active Substance: METOPROLOL
  10. FAMOTIDINE. [Concomitant]
     Active Substance: FAMOTIDINE
  11. WARFARIN [Concomitant]
     Active Substance: WARFARIN

REACTIONS (2)
  - Cerebrovascular accident [None]
  - Haemorrhage [None]

NARRATIVE: CASE EVENT DATE: 20120719
